FAERS Safety Report 25785272 (Version 1)
Quarter: 2025Q3

REPORT INFORMATION
  Report Type: Spontaneous
  Country: US (occurrence: US)
  Receive Date: 20250910
  Receipt Date: 20250910
  Transmission Date: 20251020
  Serious: No
  Sender: STRIDES
  Company Number: US-STRIDES ARCOLAB LIMITED-2025SP006480

PATIENT
  Age: 43 Year
  Sex: Female

DRUGS (7)
  1. ACCOLATE [Suspect]
     Active Substance: ZAFIRLUKAST
     Indication: Asthma
     Route: 048
     Dates: start: 2009, end: 2009
  2. ACCOLATE [Suspect]
     Active Substance: ZAFIRLUKAST
     Indication: Rhinitis allergic
     Route: 048
     Dates: start: 202503
  3. MONTELUKAST [Suspect]
     Active Substance: MONTELUKAST
     Indication: Asthma
     Route: 065
     Dates: start: 2008
  4. MONTELUKAST [Suspect]
     Active Substance: MONTELUKAST
     Indication: Rhinitis allergic
     Route: 048
     Dates: start: 2017, end: 202503
  5. BUSPIRONE HYDROCHLORIDE [Suspect]
     Active Substance: BUSPIRONE HYDROCHLORIDE
     Indication: Anxiety
     Route: 048
  6. BUSPIRONE HYDROCHLORIDE [Suspect]
     Active Substance: BUSPIRONE HYDROCHLORIDE
     Route: 048
  7. XOLAIR [Concomitant]
     Active Substance: OMALIZUMAB
     Indication: Product used for unknown indication
     Route: 065

REACTIONS (7)
  - Nightmare [Unknown]
  - Irritability [Unknown]
  - Abdominal distension [Unknown]
  - Somnolence [Recovering/Resolving]
  - Insomnia [Not Recovered/Not Resolved]
  - Abdominal pain [Unknown]
  - Drug intolerance [Unknown]
